FAERS Safety Report 8093227-1 (Version None)
Quarter: 2012Q1

REPORT INFORMATION
  Report Type: 
  Country: None (occurrence: None)
  Receive Date: 20120128
  Receipt Date: 20110909
  Transmission Date: 20120608
  Serious: No
  Sender: FDA-Public Use
  Company Number: US-ABBOTT-11P-163-0719925-00

PATIENT
  Age: 51 Year
  Sex: Female

DRUGS (9)
  1. VITAMIN B-12 [Concomitant]
     Indication: ANAEMIA
     Dosage: MONTHLY
  2. HUMIRA [Suspect]
     Indication: CROHN'S DISEASE
     Dates: start: 20110101
  3. EFFEXOR XR [Concomitant]
     Indication: DEPRESSION
  4. MERCAPTOPURINE [Concomitant]
     Indication: CROHN'S DISEASE
  5. MERCAPTOPURINE [Concomitant]
  6. VITAMIN B-12 [Concomitant]
     Dosage: WEEKLY FOR FOUR WEEKS
     Dates: start: 20110724, end: 20110814
  7. OXYBUTYNIN [Concomitant]
     Indication: URINARY INCONTINENCE
  8. CALCIUM [Concomitant]
     Indication: PRODUCT USED FOR UNKNOWN INDICATION
  9. CALCIUM [Concomitant]

REACTIONS (5)
  - PAIN IN EXTREMITY [None]
  - CROHN'S DISEASE [None]
  - FATIGUE [None]
  - ABDOMINAL PAIN [None]
  - DIARRHOEA [None]
